FAERS Safety Report 23672029 (Version 2)
Quarter: 2025Q4

REPORT INFORMATION
  Report Type: Spontaneous
  Country: EU (occurrence: EU)
  Receive Date: 20240326
  Receipt Date: 20251005
  Transmission Date: 20260118
  Serious: Yes (Other)
  Sender: AUROBINDO
  Company Number: EU-EMA-DD-20240312-7482645-100925

PATIENT
  Age: 50 Year
  Sex: Male

DRUGS (8)
  1. ENTACAPONE [Suspect]
     Active Substance: ENTACAPONE
     Indication: Parkinson^s disease
     Dosage: UNK
     Route: 065
  2. BENSERAZIDE [Suspect]
     Active Substance: BENSERAZIDE
     Indication: Parkinson^s disease
     Dosage: UNK
     Route: 065
  3. BROMOCRIPTINE [Suspect]
     Active Substance: BROMOCRIPTINE
     Indication: Parkinson^s disease
     Dosage: UNK
     Route: 065
  4. CARBIDOPA [Suspect]
     Active Substance: CARBIDOPA
     Indication: Parkinson^s disease
     Dosage: UNK
     Route: 065
  5. LEVODOPA [Suspect]
     Active Substance: LEVODOPA
     Indication: Parkinson^s disease
     Dosage: UNK
     Route: 065
  6. PIRIBEDIL [Suspect]
     Active Substance: PIRIBEDIL
     Indication: Parkinson^s disease
     Dosage: UNK
     Route: 065
     Dates: start: 200511
  7. PERGOLIDE [Suspect]
     Active Substance: PERGOLIDE
     Indication: Parkinson^s disease
     Dosage: UNK
     Route: 065
     Dates: end: 200511
  8. TOLCAPONE [Suspect]
     Active Substance: TOLCAPONE
     Indication: Parkinson^s disease
     Dosage: UNK
     Route: 065

REACTIONS (2)
  - Gambling disorder [Recovered/Resolved]
  - Drug abuse [Recovered/Resolved]
